FAERS Safety Report 7164836-9 (Version None)
Quarter: 2010Q4

REPORT INFORMATION
  Report Type: 
  Country: None (occurrence: None)
  Receive Date: 20101215
  Receipt Date: 20101207
  Transmission Date: 20110411
  Serious: Yes (Other)
  Sender: FDA-Public Use
  Company Number: JP-PFIZER INC-2010166392

PATIENT
  Sex: Male

DRUGS (2)
  1. ZOLOFT [Suspect]
     Indication: DEPRESSIVE SYMPTOM
     Dosage: 50 MG DAILY
     Route: 048
     Dates: end: 20101101
  2. ZOLOFT [Suspect]
     Dosage: 75 MG DAILY
     Dates: start: 20101101, end: 20101101

REACTIONS (1)
  - CONVULSION [None]
